FAERS Safety Report 24760483 (Version 1)
Quarter: 2024Q4

REPORT INFORMATION
  Report Type: Spontaneous
  Country: CN (occurrence: CN)
  Receive Date: 20241220
  Receipt Date: 20241220
  Transmission Date: 20250115
  Serious: Yes (Hospitalization)
  Sender: ORGANON
  Company Number: CN-ORGANON-O2412CHN001525

PATIENT
  Age: 70 Year
  Sex: Female
  Weight: 58 kg

DRUGS (2)
  1. EZETIMIBE [Suspect]
     Active Substance: EZETIMIBE
     Indication: Hyperlipidaemia
     Dosage: 10 MILLIGRAMS (MG), ONCE A DAY (QD), ORAL
     Route: 048
     Dates: start: 20240915, end: 20241115
  2. ROSUVASTATIN CALCIUM [Suspect]
     Active Substance: ROSUVASTATIN CALCIUM
     Indication: Hyperlipidaemia
     Dosage: 5 MILLIGRAMS (MG) ONCE A DAY (QD), ORAL
     Route: 048
     Dates: start: 20240915, end: 20241116

REACTIONS (3)
  - Liver function test abnormal [Recovering/Resolving]
  - Abdominal distension [Unknown]
  - Gastrooesophageal reflux disease [Unknown]

NARRATIVE: CASE EVENT DATE: 20241115
